FAERS Safety Report 6902850-6 (Version None)
Quarter: 2010Q3

REPORT INFORMATION
  Report Type: 
  Country: None (occurrence: None)
  Receive Date: 20100803
  Receipt Date: 20080818
  Transmission Date: 20110219
  Serious: Yes (Other)
  Sender: FDA-Public Use
  Company Number: US-PFIZER INC-2008040664

PATIENT
  Sex: Male
  Weight: 73.9 kg

DRUGS (18)
  1. LYRICA [Suspect]
     Indication: SPINAL COLUMN STENOSIS
     Route: 048
     Dates: start: 20080507
  2. LYRICA [Suspect]
     Indication: NEURALGIA
  3. NEURONTIN [Suspect]
  4. WARFARIN SODIUM [Concomitant]
  5. ZOLOFT [Concomitant]
  6. TYLENOL [Concomitant]
  7. AMIODARONE HCL [Concomitant]
  8. NIASPAN [Concomitant]
  9. LEVOTHYROXINE [Concomitant]
  10. LASIX [Concomitant]
  11. FOSAMAX [Concomitant]
  12. DIAZEPAM [Concomitant]
  13. VALSARTAN [Concomitant]
  14. COMBIVENT [Concomitant]
  15. NITROGLYCERIN [Concomitant]
  16. DIGITEK [Concomitant]
  17. COLACE [Concomitant]
  18. COREG [Concomitant]

REACTIONS (11)
  - BLOOD CREATININE INCREASED [None]
  - BLOOD GLUCOSE INCREASED [None]
  - BLOOD UREA INCREASED [None]
  - DRUG INTOLERANCE [None]
  - HAEMATOCRIT DECREASED [None]
  - HYPERSOMNIA [None]
  - INTERNATIONAL NORMALISED RATIO INCREASED [None]
  - PLATELET COUNT DECREASED [None]
  - PROTHROMBIN LEVEL INCREASED [None]
  - SEDATION [None]
  - SOMNOLENCE [None]
